FAERS Safety Report 6574577-4 (Version None)
Quarter: 2010Q1

REPORT INFORMATION
  Report Type: 
  Country: None (occurrence: None)
  Receive Date: 20100209
  Receipt Date: 20100201
  Transmission Date: 20100710
  Serious: Yes (Death, Life-Threatening, Hospitalization)
  Sender: FDA-Public Use
  Company Number: ES-TEVA-223329ISR

PATIENT
  Age: 33 Year
  Sex: Female

DRUGS (10)
  1. METHOTREXATE [Suspect]
  2. METHOTREXATE [Suspect]
  3. METHOTREXATE [Suspect]
  4. PREDNISONE [Suspect]
     Dosage: LESS THAN 1 MG/KG/DAY
  5. AZATHIOPRINE [Suspect]
     Dosage: 150 MG/KG/DAY
  6. AZATHIOPRINE [Suspect]
  7. AZATHIOPRINE [Suspect]
  8. AZATHIOPRINE [Suspect]
  9. CORTICOSTEROIDS [Suspect]
  10. IMMUNE GLOBULIN NOS [Concomitant]
     Dosage: 0.4 MG/KG/DAY
     Route: 042

REACTIONS (3)
  - EPSTEIN-BARR VIRUS ASSOCIATED LYMPHOPROLIFERATIVE DISORDER [None]
  - MULTI-ORGAN FAILURE [None]
  - TUMOUR LYSIS SYNDROME [None]
